FAERS Safety Report 20850755 (Version 1)
Quarter: 2022Q2

REPORT INFORMATION
  Report Type: Spontaneous
  Country: US (occurrence: US)
  Receive Date: 20220519
  Receipt Date: 20220519
  Transmission Date: 20220721
  Serious: No
  Sender: FDA-Public Use
  Company Number: US-PFIZER INC-202200158064

PATIENT
  Age: 77 Year
  Sex: Male

DRUGS (1)
  1. LATANOPROST [Suspect]
     Active Substance: LATANOPROST
     Indication: Glaucoma
     Dosage: 2 DROP, 1X/DAY (ONE DROP IN AFFECTED EYES IN EVENING)

REACTIONS (3)
  - Dyspnoea [Unknown]
  - Product delivery mechanism issue [Unknown]
  - Poor quality product administered [Unknown]
